FAERS Safety Report 7663152 (Version 6)
Quarter: 2013Q3

REPORT INFORMATION
  Report Type: Report from Study
  Country: US (occurrence: US)
  Receive Date: 20101110
  Receipt Date: 20130816
  Transmission Date: 20140515
  Serious: Yes (Hospitalization, Other)
  Sender: FDA-Public Use
  Company Number: US-ACTELION-A-US2009-32229

PATIENT
  Age: 24 Year
  Sex: Male
  Weight: 38.3 kg

DRUGS (19)
  1. TRACLEER [Suspect]
     Indication: PULMONARY ARTERIAL HYPERTENSION
     Dosage: 31.25 MG, QD
     Route: 048
  2. TRACLEER [Suspect]
     Dosage: 62.5 MG, BID
     Route: 048
     Dates: start: 20100201, end: 20100609
  3. TRACLEER [Suspect]
     Dosage: 31.25 MG, BID
     Route: 048
     Dates: start: 20080723
  4. TRACLEER [Suspect]
     Dosage: 31.25 MG, BID
     Route: 048
     Dates: start: 20100712
  5. TRACLEER [Suspect]
     Dosage: UNK MG, BID
     Route: 048
     Dates: start: 20091202
  6. ALBUTEROL [Concomitant]
  7. EXJADE [Concomitant]
  8. ADVAIR [Concomitant]
  9. FOLIC ACID [Concomitant]
  10. HYDROXYUREA [Concomitant]
  11. PRILOSEC [Concomitant]
  12. METHOTREXATE [Concomitant]
  13. REGLAN [Concomitant]
  14. K-DUR [Concomitant]
  15. DARVOCET [Concomitant]
  16. MS CONTIN [Concomitant]
  17. REMICADE [Concomitant]
  18. METHADONE [Concomitant]
  19. COUMADIN [Concomitant]

REACTIONS (11)
  - Liver function test abnormal [Recovered/Resolved]
  - Sickle cell anaemia with crisis [Unknown]
  - Blood bilirubin increased [Recovered/Resolved]
  - Aspartate aminotransferase increased [Recovered/Resolved]
  - Haemoglobin decreased [Unknown]
  - Pain [Unknown]
  - Arteriosclerosis [Recovering/Resolving]
  - Diarrhoea [Recovering/Resolving]
  - Transfusion [Recovering/Resolving]
  - Pneumonia [Recovering/Resolving]
  - Dehydration [Recovered/Resolved]
